FAERS Safety Report 21685176 (Version 1)
Quarter: 2022Q4

REPORT INFORMATION
  Report Type: Report from Study
  Country: US (occurrence: US)
  Receive Date: 20221206
  Receipt Date: 20221206
  Transmission Date: 20230113
  Serious: Yes (Other)
  Sender: FDA-Public Use
  Company Number: US-ABBVIE-4176669

PATIENT
  Age: 75 Year
  Sex: Female

DRUGS (31)
  1. VENCLEXTA [Suspect]
     Active Substance: VENETOCLAX
     Indication: Acute myeloid leukaemia
     Route: 048
  2. Centrum silver, /old form/ [Concomitant]
     Indication: Product used for unknown indication
     Dosage: 50 WOMEN
  3. HYDRALAZINE HCL [Concomitant]
     Active Substance: HYDRALAZINE HYDROCHLORIDE
     Indication: Product used for unknown indication
     Dosage: 25 MILLIGRAM
  4. DULOXETINE HYDROCHLORIDE [Concomitant]
     Active Substance: DULOXETINE HYDROCHLORIDE
     Indication: Product used for unknown indication
     Dosage: 60 MILLIGRAM
  5. CARBATROL [Concomitant]
     Active Substance: CARBAMAZEPINE
     Indication: Product used for unknown indication
     Dosage: 300 MILLIGRAM
  6. NITROSTAT [Concomitant]
     Active Substance: NITROGLYCERIN
     Indication: Product used for unknown indication
  7. PERCOCET [Concomitant]
     Active Substance: ACETAMINOPHEN\OXYCODONE HYDROCHLORIDE
     Indication: Product used for unknown indication
     Dosage: ORAL TABLET 10-325 MG
  8. SUMATRIPTAN [Concomitant]
     Active Substance: SUMATRIPTAN
     Indication: Product used for unknown indication
     Dosage: 50 MILLIGRAM
  9. CODEINE\PROMETHAZINE [Concomitant]
     Active Substance: CODEINE\PROMETHAZINE
     Indication: Product used for unknown indication
     Dosage: 6.25-10MG/5 ML
  10. ATROVENT [Concomitant]
     Active Substance: IPRATROPIUM BROMIDE
     Indication: Product used for unknown indication
     Dosage: 0.06%
  11. FIORICET [Concomitant]
     Active Substance: ACETAMINOPHEN\BUTALBITAL\CAFFEINE
     Indication: Product used for unknown indication
     Dosage: 50-325-40 MG
  12. ZOFRAN [Concomitant]
     Active Substance: ONDANSETRON HYDROCHLORIDE
     Indication: Product used for unknown indication
     Dosage: ORAL TABLET 4 MG
  13. LISINOPRIL [Concomitant]
     Active Substance: LISINOPRIL
     Indication: Product used for unknown indication
     Dosage: 5 MILLIGRAM
  14. ESOMEPRAZOLE [Concomitant]
     Active Substance: ESOMEPRAZOLE
     Indication: Product used for unknown indication
     Dosage: 40 MILLIGRAM
  15. ACYCLOVIR [Concomitant]
     Active Substance: ACYCLOVIR
     Indication: Product used for unknown indication
     Dosage: 400 MILLIGRAM
  16. ROBITUSSIN (GUAIFENESIN) [Concomitant]
     Active Substance: GUAIFENESIN
     Indication: Product used for unknown indication
     Dosage: COUGHCHEST CONG DM
  17. ALBUTEROL SULFATE [Concomitant]
     Active Substance: ALBUTEROL SULFATE
     Indication: Product used for unknown indication
     Dosage: 108 MICROGRAM
  18. LIDOCAINE\PRILOCAINE [Concomitant]
     Active Substance: LIDOCAINE\PRILOCAINE
     Indication: Product used for unknown indication
     Dosage: EXTERNAL CREAM 2.5-2.5%
  19. Cortisporin, /old form/ [Concomitant]
     Indication: Product used for unknown indication
     Dosage: EXTERNAL CREAM 3.5-1000 -0.5
  20. AMOXICILLIN [Concomitant]
     Active Substance: AMOXICILLIN
     Indication: Product used for unknown indication
     Dosage: 500 MILLIGRAM
  21. ADVAIR HFA [Concomitant]
     Active Substance: FLUTICASONE PROPIONATE\SALMETEROL XINAFOATE
     Indication: Product used for unknown indication
     Dosage: DISKUS INHALATION AEROSOL 250-50 MCG
  22. SIMVASTATIN [Concomitant]
     Active Substance: SIMVASTATIN
     Indication: Product used for unknown indication
     Dosage: 40 MILLIGRAM
  23. METOPROLOL TARTRATE [Concomitant]
     Active Substance: METOPROLOL TARTRATE
     Indication: Product used for unknown indication
     Dosage: 25 MILLIGRAM
  24. MAGNESIUM OXIDE [Concomitant]
     Active Substance: MAGNESIUM OXIDE
     Indication: Product used for unknown indication
     Dosage: 400 MILLIGRAM
  25. TOBREX [Concomitant]
     Active Substance: TOBRAMYCIN
     Indication: Product used for unknown indication
     Dosage: OPHTHALMIC OINTMENT 0.3 %
  26. PEPTO-BISMOL [Concomitant]
     Active Substance: BISMUTH SUBSALICYLATE
     Indication: Product used for unknown indication
     Dosage: ORAL SUSPENSION 262 MG
  27. EQUATE ALLERGY RELIEF [Concomitant]
     Active Substance: FLUTICASONE PROPIONATE
     Indication: Product used for unknown indication
     Dosage: 10 MILLIGRAM
  28. LIDODERM [Concomitant]
     Active Substance: LIDOCAINE
     Indication: Product used for unknown indication
     Dosage: EXTERNAL PATCH 5 %
  29. SODIUM CHLORIDE [Concomitant]
     Active Substance: SODIUM CHLORIDE
     Indication: Product used for unknown indication
     Dosage: 1 GRAM
  30. BACLOFEN [Concomitant]
     Active Substance: BACLOFEN
     Indication: Product used for unknown indication
  31. WARFARIN SODIUM [Concomitant]
     Active Substance: WARFARIN SODIUM
     Indication: Product used for unknown indication
     Dosage: 2 MILLIGRAM

REACTIONS (4)
  - Thoracic haemorrhage [Recovered/Resolved]
  - Platelet count decreased [Unknown]
  - Full blood count decreased [Unknown]
  - Epistaxis [Not Recovered/Not Resolved]

NARRATIVE: CASE EVENT DATE: 20221001
